FAERS Safety Report 11448357 (Version 1)
Quarter: 2015Q3

REPORT INFORMATION
  Report Type: Spontaneous
  Country: US (occurrence: US)
  Receive Date: 20150831
  Receipt Date: 20150831
  Transmission Date: 20151125
  Serious: No
  Sender: FDA-Public Use
  Company Number: US-ELI_LILLY_AND_COMPANY-US200907001171

PATIENT
  Sex: Female

DRUGS (2)
  1. WELLBUTRIN [Concomitant]
     Active Substance: BUPROPION HYDROCHLORIDE
     Dosage: 150 MG, DAILY (1/D)
  2. CYMBALTA [Suspect]
     Active Substance: DULOXETINE HYDROCHLORIDE
     Dosage: 20 MG, UNK
     Dates: start: 2007

REACTIONS (9)
  - Nausea [Unknown]
  - Fatigue [Unknown]
  - Headache [Unknown]
  - Malaise [Unknown]
  - Medication error [Not Recovered/Not Resolved]
  - Drug withdrawal syndrome [Unknown]
  - Sexual dysfunction [Unknown]
  - Hyperhidrosis [Unknown]
  - Feeling hot [Unknown]
